FAERS Safety Report 9024295 (Version 3)
Quarter: 2013Q2

REPORT INFORMATION
  Report Type: Spontaneous
  Country: FR (occurrence: FR)
  Receive Date: 20130121
  Receipt Date: 20130401
  Transmission Date: 20140414
  Serious: Yes (Life-Threatening, Other)
  Sender: FDA-Public Use
  Company Number: PHHY2013FR005170

PATIENT
  Age: 57 Year
  Sex: Male
  Weight: 74 kg

DRUGS (8)
  1. TASIGNA [Suspect]
     Indication: CHRONIC MYELOID LEUKAEMIA
     Dosage: 300 MG, BID
     Route: 048
  2. TASIGNA [Suspect]
     Dosage: 400 MG, BID
     Route: 048
     Dates: start: 20121128, end: 20121227
  3. SOTALEX [Concomitant]
     Indication: HYPERTENSION
     Route: 048
     Dates: end: 20121203
  4. TENORMINE [Concomitant]
     Indication: HYPERTENSION
     Dosage: 50 MG, QD
     Route: 048
     Dates: start: 20121203, end: 20121221
  5. KENZEN [Concomitant]
     Indication: HYPERTENSION
     Dosage: 16 MG, QD
     Route: 048
  6. ALLOPURINOL [Concomitant]
     Indication: GOUTY ARTHRITIS
     Dosage: 100 MG
     Route: 048
  7. STREZAM [Concomitant]
     Indication: HYPOTONIA
     Route: 048
  8. TENORMIN [Concomitant]
     Indication: HYPERTENSION
     Dosage: 25 MG, QD
     Route: 048
     Dates: start: 20121221

REACTIONS (3)
  - Coronary artery stenosis [Recovering/Resolving]
  - Sense of oppression [Recovered/Resolved]
  - Chest pain [Recovered/Resolved]
